FAERS Safety Report 10231295 (Version 1)
Quarter: 2014Q2

REPORT INFORMATION
  Report Type: Report from Study
  Country: US (occurrence: US)
  Receive Date: 20140611
  Receipt Date: 20140611
  Transmission Date: 20141212
  Serious: Yes (Other)
  Sender: FDA-Public Use
  Company Number: PHEH2014US011663

PATIENT
  Sex: Female
  Weight: 99.77 kg

DRUGS (1)
  1. GILENYA [Suspect]
     Indication: MULTIPLE SCLEROSIS
     Dosage: 0.5 MG, QD
     Route: 048
     Dates: start: 20130327

REACTIONS (17)
  - Central nervous system lesion [Unknown]
  - Fall [Unknown]
  - Hormone level abnormal [Unknown]
  - Neuralgia [Unknown]
  - Pain in extremity [Unknown]
  - Sleep disorder [Unknown]
  - Muscular weakness [Unknown]
  - Anxiety [Unknown]
  - Paraesthesia [Unknown]
  - Hypoaesthesia [Unknown]
  - Alopecia [Unknown]
  - Chest pain [Unknown]
  - Gait disturbance [Unknown]
  - Balance disorder [Unknown]
  - Migraine [Unknown]
  - Photophobia [Unknown]
  - Back pain [Unknown]
